FAERS Safety Report 20011705 (Version 3)
Quarter: 2022Q2

REPORT INFORMATION
  Report Type: Spontaneous
  Country: GB (occurrence: GB)
  Receive Date: 20211029
  Receipt Date: 20220401
  Transmission Date: 20220721
  Serious: Yes (Other)
  Sender: FDA-Public Use
  Company Number: GB-GLAXOSMITHKLINE-GBCH2021EME071944

PATIENT

DRUGS (4)
  1. ACETAMINOPHEN [Suspect]
     Active Substance: ACETAMINOPHEN
     Indication: Product used for unknown indication
     Dosage: UNK
     Route: 065
  2. ACETAMINOPHEN [Suspect]
     Active Substance: ACETAMINOPHEN
     Indication: Product used for unknown indication
  3. NIRAPARIB [Suspect]
     Active Substance: NIRAPARIB
     Indication: Neoplasm malignant
     Dosage: 100 MG
     Route: 065
  4. NIRAPARIB [Suspect]
     Active Substance: NIRAPARIB
     Indication: Neoplasm malignant

REACTIONS (19)
  - Hypertension [Unknown]
  - Headache [Unknown]
  - Illness [Unknown]
  - Diarrhoea [Unknown]
  - Head discomfort [Unknown]
  - Feeling cold [Unknown]
  - Malaise [Unknown]
  - Dizziness [Unknown]
  - Vertigo [Unknown]
  - Vitreous floaters [Unknown]
  - Gingival bleeding [Unknown]
  - Sleep disorder due to a general medical condition [Unknown]
  - Back pain [Unknown]
  - Arthralgia [Unknown]
  - Insomnia [Unknown]
  - Nasal dryness [Recovering/Resolving]
  - Dry mouth [Recovering/Resolving]
  - Lip dry [Recovering/Resolving]
  - Sensation of foreign body [Recovering/Resolving]

NARRATIVE: CASE EVENT DATE: 20211001
